FAERS Safety Report 5949016-4 (Version None)
Quarter: 2008Q4

REPORT INFORMATION
  Report Type: 
  Country: None (occurrence: None)
  Receive Date: 20081111
  Receipt Date: 20081104
  Transmission Date: 20090506
  Serious: Yes (Death)
  Sender: FDA-Public Use
  Company Number: US-TYCO HEALTHCARE/MALLINCKRODT-T200801883

PATIENT

DRUGS (3)
  1. OPTIMARK [Suspect]
  2. OMNISCAN [Suspect]
  3. MAGNEVIST [Suspect]

REACTIONS (2)
  - NEPHROGENIC SYSTEMIC FIBROSIS [None]
  - OEDEMA PERIPHERAL [None]
